FAERS Safety Report 8432382-8 (Version None)
Quarter: 2012Q2

REPORT INFORMATION
  Report Type: 
  Country: None (occurrence: None)
  Receive Date: 20120613
  Receipt Date: 20120531
  Transmission Date: 20120825
  Serious: No
  Sender: FDA-Public Use
  Company Number: US-ASTRAZENECA-2012SE35386

PATIENT
  Age: 48 Year
  Sex: Female

DRUGS (1)
  1. NEXIUM [Suspect]
     Route: 048

REACTIONS (8)
  - OSTEOPOROSIS [None]
  - FIBULA FRACTURE [None]
  - FALL [None]
  - TIBIA FRACTURE [None]
  - EXOSTOSIS [None]
  - STAPHYLOCOCCAL OSTEOMYELITIS [None]
  - MULTIPLE FRACTURES [None]
  - PERIPHERAL ARTERIAL OCCLUSIVE DISEASE [None]
